FAERS Safety Report 22249334 (Version 1)
Quarter: 2023Q2

REPORT INFORMATION
  Report Type: Spontaneous
  Country: US (occurrence: None)
  Receive Date: 20230424
  Receipt Date: 20230424
  Transmission Date: 20230721
  Serious: Yes (unspecified)
  Sender: FDA-Public Use
  Company Number: None

PATIENT
  Age: 40 Year

DRUGS (1)
  1. CABOTEGRAVIR [Suspect]
     Active Substance: CABOTEGRAVIR
     Indication: Prophylaxis against HIV infection
     Dosage: 3 ML EVERY OTHER MONTH INTRAMUSCULAR ?
     Route: 030
     Dates: start: 20230309, end: 20230329

REACTIONS (2)
  - Depression [None]
  - Sleep disorder [None]

NARRATIVE: CASE EVENT DATE: 20230329
